FAERS Safety Report 6080198-2 (Version None)
Quarter: 2009Q1

REPORT INFORMATION
  Report Type: 
  Country: None (occurrence: None)
  Receive Date: 20090217
  Receipt Date: 20060713
  Transmission Date: 20090719
  Serious: Yes (Hospitalization, Other)
  Sender: FDA-Public Use
  Company Number: KR-BAXTER-2006BH011794

PATIENT
  Age: 31 Year
  Sex: Male

DRUGS (3)
  1. METRONIDAZOLE INJECTION RTU IN VIAFLEX PLUS CONTAINER [Suspect]
     Indication: DIARRHOEA
     Route: 065
  2. PREDNISOLONE [Concomitant]
     Indication: DIARRHOEA
     Route: 065
  3. SULFASALAZINE [Concomitant]
     Indication: DIARRHOEA
     Route: 065

REACTIONS (8)
  - ACTIVITIES OF DAILY LIVING IMPAIRED [None]
  - ALTERED STATE OF CONSCIOUSNESS [None]
  - COGNITIVE DISORDER [None]
  - DISTURBANCE IN ATTENTION [None]
  - SPEECH DISORDER [None]
  - THINKING ABNORMAL [None]
  - TOXIC ENCEPHALOPATHY [None]
  - UNRESPONSIVE TO STIMULI [None]
